FAERS Safety Report 4540873-5 (Version None)
Quarter: 2004Q4

REPORT INFORMATION
  Report Type: 
  Country: None (occurrence: None)
  Receive Date: 20041229
  Receipt Date: 20041220
  Transmission Date: 20050328
  Serious: Yes (Other)
  Sender: FDA-Public Use
  Company Number: US-NOVOPROD-241221

PATIENT
  Age: 1 Day
  Sex: Male

DRUGS (1)
  1. NOVOSEVEN [Suspect]
     Indication: FACTOR VII DEFICIENCY
     Route: 042
     Dates: start: 20041218, end: 20041218

REACTIONS (1)
  - DISEASE PROGRESSION [None]
